FAERS Safety Report 8941860 (Version 3)
Quarter: 2013Q2

REPORT INFORMATION
  Report Type: Spontaneous
  Country: US (occurrence: US)
  Receive Date: 20121203
  Receipt Date: 20130501
  Transmission Date: 20140414
  Serious: Yes (Congenital Anomaly, Other)
  Sender: FDA-Public Use
  Company Number: US-PFIZER INC-2012299269

PATIENT
  Sex: Male

DRUGS (8)
  1. ZOLOFT [Suspect]
     Dosage: UNK
     Route: 064
     Dates: start: 199406, end: 20121022
  2. PRENATAL VITAMINS [Concomitant]
     Dosage: UNK
     Route: 064
  3. FLOVENT [Concomitant]
     Dosage: UNK
     Route: 064
  4. SINGULAIR [Concomitant]
     Dosage: UNK
     Route: 064
  5. PROZAC [Concomitant]
     Dosage: UNK
     Route: 064
  6. WELLBUTRIN [Concomitant]
     Dosage: UNK
     Route: 064
  7. LIPITOR [Concomitant]
     Dosage: UNK
     Route: 064
  8. SEREVENT [Concomitant]
     Dosage: UNK
     Route: 064

REACTIONS (9)
  - Maternal exposure timing unspecified [Unknown]
  - Arnold-Chiari malformation [Unknown]
  - Tethered cord syndrome [Unknown]
  - Neurogenic bladder [Unknown]
  - Congenital anomaly [Unknown]
  - Spina bifida occulta [Unknown]
  - Neurogenic bowel [Unknown]
  - Premature baby [Unknown]
  - Functional gastrointestinal disorder [Unknown]
